FAERS Safety Report 7440418-6 (Version None)
Quarter: 2011Q2

REPORT INFORMATION
  Report Type: 
  Country: None (occurrence: None)
  Receive Date: 20110427
  Receipt Date: 20110421
  Transmission Date: 20111010
  Serious: Yes (Hospitalization, Other)
  Sender: FDA-Public Use
  Company Number: DE-BRISTOL-MYERS SQUIBB COMPANY-15669625

PATIENT
  Age: 67 Year
  Sex: Male
  Weight: 71 kg

DRUGS (9)
  1. AMPHOTERICIN B [Concomitant]
  2. DEXAMETHASONE [Concomitant]
     Indication: PROPHYLAXIS
     Dates: start: 20101115
  3. VITAMIN B-12 [Concomitant]
     Indication: PROPHYLAXIS
     Dates: start: 20101108
  4. TORSEMIDE [Concomitant]
     Indication: RENAL FAILURE
     Dates: start: 20100101
  5. ALLOPURINOL [Concomitant]
     Indication: PROPHYLAXIS
     Dates: start: 20100101
  6. CISPLATIN [Suspect]
     Indication: NON-SMALL CELL LUNG CANCER
     Route: 042
     Dates: start: 20101115
  7. PEMETREXED DISODIUM [Suspect]
     Indication: NON-SMALL CELL LUNG CANCER
     Route: 042
     Dates: start: 20101115
  8. FOLIC ACID [Concomitant]
     Indication: PROPHYLAXIS
     Dates: start: 20101108
  9. PANTOPRAZOLE [Concomitant]
     Indication: DYSPEPSIA
     Dates: start: 20100101

REACTIONS (2)
  - NAUSEA [None]
  - VERTIGO [None]
